FAERS Safety Report 25469128 (Version 1)
Quarter: 2025Q2

REPORT INFORMATION
  Report Type: Report from Study
  Country: DE (occurrence: DE)
  Receive Date: 20250623
  Receipt Date: 20250623
  Transmission Date: 20250717
  Serious: Yes (Other)
  Sender: UCB
  Company Number: DE-UCBSA-2025036384

PATIENT
  Age: 27 Year
  Sex: Female

DRUGS (1)
  1. FENFLURAMINE HYDROCHLORIDE [Suspect]
     Active Substance: FENFLURAMINE HYDROCHLORIDE
     Indication: Lennox-Gastaut syndrome
     Dosage: 6 MILLILITER, 2X/DAY (BID)
     Dates: start: 202412

REACTIONS (4)
  - Lipoedema [Unknown]
  - Fall [Unknown]
  - Face injury [Unknown]
  - Weight increased [Unknown]

NARRATIVE: CASE EVENT DATE: 20250401
